FAERS Safety Report 7301344-6 (Version None)
Quarter: 2011Q1

REPORT INFORMATION
  Report Type: 
  Country: None (occurrence: None)
  Receive Date: 20110218
  Receipt Date: 20110211
  Transmission Date: 20110831
  Serious: Yes (Other)
  Sender: FDA-Public Use
  Company Number: US-TEVA-267434USA

PATIENT
  Sex: Female

DRUGS (2)
  1. METOCLOPRAMIDE HCL [Suspect]
  2. METOCLOPRAMIDE HCL [Suspect]

REACTIONS (3)
  - RESTLESS LEGS SYNDROME [None]
  - DYSKINESIA [None]
  - MYOCLONUS [None]
